FAERS Safety Report 15000679 (Version 1)
Quarter: 2018Q2

REPORT INFORMATION
  Report Type: Spontaneous
  Country: US (occurrence: US)
  Receive Date: 20180523
  Receipt Date: 20180523
  Transmission Date: 20180711
  Serious: Yes (Other)
  Sender: FDA-Public Use
  Company Number: None

PATIENT
  Age: 80 Year
  Sex: Female

DRUGS (1)
  1. METOPROLOL SUCC ER 50 [Suspect]
     Active Substance: METOPROLOL SUCCINATE
     Indication: HYPERTENSION
     Dosage: OTHER FREQUENCY:2 IN AM 1 IN PM;?
     Route: 052
     Dates: start: 20180419, end: 20180429

REACTIONS (1)
  - Blood pressure systolic increased [None]

NARRATIVE: CASE EVENT DATE: 20180429
